FAERS Safety Report 8048308-5 (Version None)
Quarter: 2012Q1

REPORT INFORMATION
  Report Type: 
  Country: None (occurrence: None)
  Receive Date: 20120117
  Receipt Date: 20120112
  Transmission Date: 20120608
  Serious: Yes (Other)
  Sender: FDA-Public Use
  Company Number: US-PFIZER INC-2012010929

PATIENT
  Sex: Male
  Weight: 56.236 kg

DRUGS (8)
  1. OXYCONTIN [Concomitant]
     Indication: NECK PAIN
  2. PEGASYS [Suspect]
     Indication: HEPATITIS C
     Dosage: UNK, WEEKLY
  3. OXYCODONE [Concomitant]
     Indication: NECK PAIN
  4. OXYCONTIN [Concomitant]
     Indication: BACK PAIN
     Dosage: 120 MG, 2X/DAY
  5. RIBAVIRIN [Suspect]
     Indication: HEPATITIS C
     Dosage: UNK,2X/DAY
  6. CHANTIX [Suspect]
     Indication: SMOKING CESSATION THERAPY
     Dosage: 1 MG DAILY
  7. CHANTIX [Suspect]
     Dosage: UNK
     Dates: start: 20110101, end: 20110101
  8. OXYCODONE [Concomitant]
     Indication: BACK PAIN
     Dosage: 60 MG, EVERY 4 HRS

REACTIONS (3)
  - DRUG INEFFECTIVE [None]
  - DYSPNOEA [None]
  - WEIGHT DECREASED [None]
